FAERS Safety Report 9019767 (Version 1)
Quarter: 2013Q1

REPORT INFORMATION
  Report Type: Spontaneous
  Country: US (occurrence: US)
  Receive Date: 20130118
  Receipt Date: 20130118
  Transmission Date: 20140127
  Serious: No
  Sender: FDA-Public Use
  Company Number: US-SANOFI-AVENTIS-2012SA002657

PATIENT
  Age: 78 Year
  Sex: Male
  Weight: 89 kg

DRUGS (10)
  1. LASIX [Suspect]
     Dosage: TWO 20 MG TABLETS TWICE A DAY
     Route: 048
     Dates: start: 20111230
  2. TERAZOSIN [Concomitant]
  3. PROSCAR [Concomitant]
  4. VITAMIN D3 [Concomitant]
  5. VITAMIN B6 [Concomitant]
  6. VITAMIN C [Concomitant]
  7. ASPIRIN [Concomitant]
  8. FISH OIL [Concomitant]
  9. SLO-MAG [Concomitant]
  10. K-DUR [Concomitant]

REACTIONS (2)
  - Neuralgia [Recovered/Resolved]
  - Insomnia [Recovered/Resolved]
